FAERS Safety Report 4478124-2 (Version None)
Quarter: 2004Q4

REPORT INFORMATION
  Report Type: 
  Country: None (occurrence: None)
  Receive Date: 20041018
  Receipt Date: 20041018
  Transmission Date: 20050328
  Serious: No
  Sender: FDA-Public Use
  Company Number: None

PATIENT
  Age: 77 Year
  Sex: Male
  Weight: 79.8331 kg

DRUGS (11)
  1. GATIFLOXACIN [Suspect]
     Indication: URINARY TRACT INFECTION
     Dosage: 400 MG MG PO DAILY
     Route: 048
     Dates: start: 20040803, end: 20040805
  2. ISOSORBIDE [Concomitant]
  3. LISINOPRIL [Concomitant]
  4. SIMVASTATIN [Concomitant]
  5. TERAZOSIN HCL [Concomitant]
  6. CLOPIDOGREL [Concomitant]
  7. RANITIDINE [Concomitant]
  8. FUROSEMIDE [Concomitant]
  9. GLYBURIDE [Concomitant]
  10. METFORMIN HCL [Concomitant]
  11. METOPROLOL SUCCINATE [Concomitant]

REACTIONS (1)
  - HYPOGLYCAEMIA [None]
